FAERS Safety Report 19835240 (Version 1)
Quarter: 2021Q3

REPORT INFORMATION
  Report Type: Spontaneous
  Country: US (occurrence: US)
  Receive Date: 20210915
  Receipt Date: 20210915
  Transmission Date: 20211014
  Serious: Yes (Other)
  Sender: FDA-Public Use
  Company Number: US-ENDO PHARMACEUTICALS INC-2021-011589

PATIENT
  Sex: Female

DRUGS (3)
  1. ANCEF [Concomitant]
     Active Substance: CEFAZOLIN SODIUM
     Indication: PROPHYLAXIS
     Dosage: UNK UNKNOWN, UNKNOWN
     Route: 065
     Dates: start: 202107
  2. SUPPRELIN LA [Suspect]
     Active Substance: HISTRELIN ACETATE
     Indication: PRECOCIOUS PUBERTY
     Dosage: UNK UNKNOWN, UNKNOWN
     Route: 065
     Dates: start: 20210719, end: 2021
  3. SUPPRELIN LA [Suspect]
     Active Substance: HISTRELIN ACETATE
     Indication: PRECOCIOUS PUBERTY
     Dosage: UNK UNKNOWN, UNKNOWN
     Route: 065
     Dates: start: 20210719, end: 2021

REACTIONS (5)
  - Excessive granulation tissue [Unknown]
  - Implant site discharge [Unknown]
  - Implant site oedema [Unknown]
  - Hypersensitivity [Unknown]
  - Administration site scab [Unknown]

NARRATIVE: CASE EVENT DATE: 2021
